FAERS Safety Report 11485439 (Version 1)
Quarter: 2015Q3

REPORT INFORMATION
  Report Type: Spontaneous
  Country: US (occurrence: US)
  Receive Date: 20150909
  Receipt Date: 20150909
  Transmission Date: 20151125
  Serious: No
  Sender: FDA-Public Use
  Company Number: US-JAZZ-2015-US-000158

PATIENT
  Age: 66 Year
  Sex: Female

DRUGS (4)
  1. XYREM [Suspect]
     Active Substance: SODIUM OXYBATE
     Dosage: 3.75 G, BID
     Route: 048
     Dates: start: 201409
  2. XYREM [Suspect]
     Active Substance: SODIUM OXYBATE
     Indication: NARCOLEPSY
     Dosage: 2.25 G, BID
     Route: 048
     Dates: start: 201407, end: 201408
  3. XYREM [Suspect]
     Active Substance: SODIUM OXYBATE
     Dosage: 3 G, BID
     Route: 048
     Dates: start: 201408, end: 201409
  4. KLONOPIN [Suspect]
     Active Substance: CLONAZEPAM
     Indication: ESSENTIAL TREMOR
     Dosage: 0.5 MG, QD

REACTIONS (5)
  - Essential tremor [Unknown]
  - Parasomnia [Recovered/Resolved]
  - Condition aggravated [Unknown]
  - Poor quality sleep [Unknown]
  - Unevaluable event [Unknown]

NARRATIVE: CASE EVENT DATE: 201501
